FAERS Safety Report 16169029 (Version 1)
Quarter: 2019Q2

REPORT INFORMATION
  Report Type: Spontaneous
  Country: US (occurrence: US)
  Receive Date: 20190404
  Receipt Date: 20190404
  Transmission Date: 20190711
  Serious: Yes (Life-Threatening, Hospitalization)
  Sender: FDA-Public Use
  Company Number: None

PATIENT
  Age: 65 Year
  Sex: Female
  Weight: 45.9 kg

DRUGS (2)
  1. NIVOLUMAB [Suspect]
     Active Substance: NIVOLUMAB
  2. IPILIMUMAB [Suspect]
     Active Substance: IPILIMUMAB

REACTIONS (3)
  - Hypotension [None]
  - Pyrexia [None]
  - Liver function test increased [None]

NARRATIVE: CASE EVENT DATE: 20190402
